FAERS Safety Report 4573335-X (Version None)
Quarter: 2005Q1

REPORT INFORMATION
  Report Type: 
  Country: None (occurrence: None)
  Receive Date: 20050208
  Receipt Date: 20040706
  Transmission Date: 20050727
  Serious: No
  Sender: FDA-Public Use
  Company Number: US-GLAXOSMITHKLINE-A0520883A

PATIENT
  Sex: Female

DRUGS (2)
  1. PAXIL [Suspect]
     Indication: DEPRESSION
     Dosage: 20MG IN THE MORNING
     Route: 048
     Dates: start: 20000405
  2. TRAZODONE [Concomitant]
     Indication: DEPRESSION
     Dosage: 50MG AT NIGHT
     Route: 048
     Dates: start: 20000405

REACTIONS (1)
  - DRUG WITHDRAWAL SYNDROME [None]
